FAERS Safety Report 6440535-3 (Version None)
Quarter: 2009Q4

REPORT INFORMATION
  Report Type: 
  Country: None (occurrence: None)
  Receive Date: 20091113
  Receipt Date: 20091102
  Transmission Date: 20100525
  Serious: Yes (Hospitalization, Other)
  Sender: FDA-Public Use
  Company Number: US-ELI_LILLY_AND_COMPANY-US200911002900

PATIENT
  Sex: Female

DRUGS (3)
  1. FORTEO [Suspect]
     Indication: OSTEOPOROSIS
     Dosage: UNK, UNKNOWN
     Dates: start: 20090907
  2. CALCIUM [Concomitant]
     Dosage: 1000 MG, UNK
     Dates: start: 20090901
  3. VITAMIN D [Concomitant]
     Dosage: UNK, UNKNOWN

REACTIONS (6)
  - BACK PAIN [None]
  - DEMENTIA [None]
  - OVERDOSE [None]
  - OXYGEN SUPPLEMENTATION [None]
  - POST PROCEDURAL COMPLICATION [None]
  - TRANSFUSION [None]
